FAERS Safety Report 9122593 (Version 3)
Quarter: 2013Q2

REPORT INFORMATION
  Report Type: Spontaneous
  Country: US (occurrence: US)
  Receive Date: 20130227
  Receipt Date: 20130509
  Transmission Date: 20140414
  Serious: Yes (Other)
  Sender: FDA-Public Use
  Company Number: US-PFIZER INC-2013018769

PATIENT
  Age: 41 Year
  Sex: Male
  Weight: 74.83 kg

DRUGS (4)
  1. LYRICA [Suspect]
     Indication: NEURALGIA
     Dosage: 75 MG, 2X/DAY
     Route: 048
     Dates: start: 2004
  2. LYRICA [Suspect]
     Dosage: 150 MG, 2X/DAY
     Route: 048
     Dates: start: 2007
  3. LYRICA [Suspect]
     Dosage: 150 MG, 2X/DAY
     Route: 048
     Dates: start: 2012, end: 201212
  4. SOMA [Concomitant]
     Dosage: UNK

REACTIONS (8)
  - Intervertebral disc protrusion [Unknown]
  - Cerebrospinal fluid leakage [Unknown]
  - Back injury [Unknown]
  - Spinal column injury [Unknown]
  - Nerve compression [Unknown]
  - Neuropathy peripheral [Unknown]
  - Drug ineffective [Unknown]
  - Pain [Unknown]
